FAERS Safety Report 22055134 (Version 1)
Quarter: 2023Q1

REPORT INFORMATION
  Report Type: Spontaneous
  Country: US (occurrence: None)
  Receive Date: 20230301
  Receipt Date: 20230301
  Transmission Date: 20230418
  Serious: Yes (Other)
  Sender: FDA-Public Use
  Company Number: None

PATIENT
  Age: 87 Year
  Sex: Female

DRUGS (1)
  1. SUNITINIB [Suspect]
     Active Substance: SUNITINIB
     Dosage: 25 MG DAILY ORAL
     Route: 048
     Dates: start: 20210610

REACTIONS (4)
  - Decreased appetite [None]
  - Back pain [None]
  - Renal disorder [None]
  - Blood potassium increased [None]

NARRATIVE: CASE EVENT DATE: 20230125
